FAERS Safety Report 9699789 (Version 1)
Quarter: 2013Q4

REPORT INFORMATION
  Report Type: Spontaneous
  Country: GB (occurrence: GB)
  Receive Date: 20131120
  Receipt Date: 20131120
  Transmission Date: 20140711
  Serious: Yes (Hospitalization)
  Sender: FDA-Public Use
  Company Number: GB-TEVA-444382ISR

PATIENT
  Age: 61 Year
  Sex: Female

DRUGS (21)
  1. CARBOPLATIN [Suspect]
     Indication: BREAST CANCER
     Route: 065
     Dates: start: 20120817
  2. CARBOPLATIN [Suspect]
     Route: 065
     Dates: start: 20121012
  3. DOCETAXEL [Suspect]
     Indication: BREAST CANCER
     Route: 065
     Dates: start: 20120817
  4. DOCETAXEL [Suspect]
     Route: 065
     Dates: start: 20121012
  5. HERCEPTIN [Suspect]
     Indication: BREAST CANCER
     Route: 065
     Dates: start: 20120817
  6. HERCEPTIN [Suspect]
     Route: 065
     Dates: start: 20121012
  7. ONDANSETRON [Concomitant]
     Dosage: BOLUS
     Route: 065
     Dates: start: 20120817
  8. ONDANSETRON [Concomitant]
     Route: 048
     Dates: start: 20120817, end: 20120821
  9. ONDANSETRON [Concomitant]
     Route: 048
     Dates: start: 20120914, end: 20120918
  10. ONDANSETRON [Concomitant]
     Dosage: 4-6 MG
     Route: 065
     Dates: start: 20121012, end: 20121018
  11. CHLORPHENAMINE [Concomitant]
     Dosage: BOLUS
     Route: 065
     Dates: start: 20120817
  12. RANITIDINE [Concomitant]
     Dosage: BOLUS
     Route: 065
     Dates: start: 20120817
  13. DEXAMETHASONE [Concomitant]
     Route: 065
     Dates: start: 20120816, end: 20120818
  14. FILGRASTIM [Concomitant]
     Route: 065
     Dates: start: 20120818, end: 20120823
  15. FILGRASTIM [Concomitant]
     Route: 065
     Dates: start: 20120914, end: 20120920
  16. FILGRASTIM [Concomitant]
     Route: 065
     Dates: start: 20121012, end: 20121019
  17. METOCLOPRAMIDE [Concomitant]
     Dosage: 40-80 MG
     Route: 065
     Dates: start: 20120914, end: 20120920
  18. METFORMIN [Concomitant]
  19. GLICLAZIDE [Concomitant]
  20. SIMVASTATIN [Concomitant]
  21. CALCICHEW D3 [Concomitant]

REACTIONS (4)
  - Diarrhoea [Recovering/Resolving]
  - Nausea [Recovering/Resolving]
  - Vomiting [Recovering/Resolving]
  - Dysuria [Unknown]
